FAERS Safety Report 18101952 (Version 1)
Quarter: 2020Q3

REPORT INFORMATION
  Report Type: Other
  Country: FR (occurrence: FR)
  Receive Date: 20200802
  Receipt Date: 20200802
  Transmission Date: 20201103
  Serious: Yes (Other)
  Sender: FDA-Public Use
  Company Number: FR-ROCHE-2649730

PATIENT
  Age: 43 Year
  Sex: Female

DRUGS (1)
  1. RITUXIMAB. [Suspect]
     Active Substance: RITUXIMAB
     Indication: NEUROMYELITIS OPTICA SPECTRUM DISORDER
     Route: 042

REACTIONS (6)
  - Bronchitis [Unknown]
  - Alopecia [Unknown]
  - Pseudomonas infection [Unknown]
  - Intentional product use issue [Unknown]
  - Off label use [Unknown]
  - Immunodeficiency [Unknown]
